FAERS Safety Report 21245018 (Version 3)
Quarter: 2022Q3

REPORT INFORMATION
  Report Type: Spontaneous
  Country: CN (occurrence: None)
  Receive Date: 20220823
  Receipt Date: 20220916
  Transmission Date: 20221027
  Serious: Yes (Hospitalization, Other)
  Sender: FDA-Public Use
  Company Number: 2022A291533

PATIENT
  Age: 774 Month
  Sex: Female
  Weight: 49 kg

DRUGS (3)
  1. IMFINZI [Suspect]
     Active Substance: DURVALUMAB
     Indication: Non-small cell lung cancer stage III
     Dosage: USED ONCE EVERY 3-4 WEEKS, AND 500MG AT ONCE
     Route: 042
     Dates: start: 202201, end: 202205
  2. IMFINZI [Suspect]
     Active Substance: DURVALUMAB
     Indication: Non-small cell lung cancer stage III
     Dosage: USED ONCE EVERY 3-4 WEEKS, AND 500MG AT ONCE
     Route: 042
     Dates: start: 20220613
  3. LENVATINIB [Concomitant]
     Active Substance: LENVATINIB
     Route: 065
     Dates: start: 202201

REACTIONS (3)
  - Jaundice [Recovering/Resolving]
  - Anaemia [Recovering/Resolving]
  - Platelet count decreased [Unknown]

NARRATIVE: CASE EVENT DATE: 20220501
